FAERS Safety Report 18628207 (Version 1)
Quarter: 2020Q4

REPORT INFORMATION
  Report Type: Report from Study
  Country: IE (occurrence: IE)
  Receive Date: 20201217
  Receipt Date: 20201217
  Transmission Date: 20210114
  Serious: Yes (Other)
  Sender: FDA-Public Use
  Company Number: IE-SHIRE-IE202027135

PATIENT
  Age: 13 Year
  Sex: Male

DRUGS (14)
  1. IDURSULFASE [Suspect]
     Active Substance: IDURSULFASE
     Dosage: 24/30 MILLIGRAM, ON ALTERNATE WEEKS
     Route: 042
     Dates: start: 20200812
  2. IDURSULFASE [Suspect]
     Active Substance: IDURSULFASE
     Dosage: 24/30 MILLIGRAM, ON ALTERNATE WEEKS
     Route: 042
     Dates: start: 20200819
  3. DIAZEPAM. [Concomitant]
     Active Substance: DIAZEPAM
     Dosage: 2.5 MILLIGRAM
     Route: 050
  4. IDURSULFASE [Suspect]
     Active Substance: IDURSULFASE
     Dosage: 30/24 MILLIGRAM, ON ALTERNATE WEEKS
     Route: 042
     Dates: start: 20200923
  5. IDURSULFASE [Suspect]
     Active Substance: IDURSULFASE
     Indication: MUCOPOLYSACCHARIDOSIS II
     Dosage: 18 MG/24MG, ALTERNATE WEEKS
     Route: 050
     Dates: start: 20120119
  6. RANITIDINE. [Concomitant]
     Active Substance: RANITIDINE
     Dosage: 5 MILLILITER
     Route: 050
  7. IDURSULFASE [Suspect]
     Active Substance: IDURSULFASE
     Dosage: 24/30 MILLIGRAM, ON ALTERNATE WEEKS
     Route: 042
     Dates: start: 20150427
  8. RANITIDINE. [Concomitant]
     Active Substance: RANITIDINE
     Indication: PRODUCT USED FOR UNKNOWN INDICATION
     Dosage: 10 MILLILITER, 1/WEEK
     Route: 050
  9. CETIRIZINE HYDROCHLORIDE. [Concomitant]
     Active Substance: CETIRIZINE HYDROCHLORIDE
     Indication: PRODUCT USED FOR UNKNOWN INDICATION
     Dosage: 5 MILLIGRAM
     Route: 050
  10. VOLTAROL [Concomitant]
     Active Substance: DICLOFENAC SODIUM
     Indication: PRODUCT USED FOR UNKNOWN INDICATION
     Dosage: 25 MILLIGRAM, BID
     Route: 050
  11. IDURSULFASE [Suspect]
     Active Substance: IDURSULFASE
     Dosage: 30/24 MILLIGRAM, ON ALTERNATE WEEKS
     Route: 042
     Dates: start: 20200923
  12. ZIRTEK [Concomitant]
     Active Substance: CETIRIZINE HYDROCHLORIDE
     Indication: PRODUCT USED FOR UNKNOWN INDICATION
     Dosage: 5 MILLILITER
     Route: 050
  13. PREDNISOLONE. [Concomitant]
     Active Substance: PREDNISOLONE
     Indication: PRODUCT USED FOR UNKNOWN INDICATION
     Dosage: 2 MILLIGRAM
     Route: 050
  14. PARACETAMOL [Concomitant]
     Active Substance: ACETAMINOPHEN
     Indication: PRODUCT USED FOR UNKNOWN INDICATION
     Dosage: 15 MILLILITER
     Route: 050

REACTIONS (4)
  - Choking [Unknown]
  - Vomiting [Unknown]
  - Nail operation [Recovering/Resolving]
  - Dyspepsia [Unknown]

NARRATIVE: CASE EVENT DATE: 20200929
